FAERS Safety Report 16788873 (Version 2)
Quarter: 2020Q3

REPORT INFORMATION
  Report Type: Spontaneous
  Country: JP (occurrence: JP)
  Receive Date: 20190910
  Receipt Date: 20200903
  Transmission Date: 20201102
  Serious: Yes (Death, Other)
  Sender: FDA-Public Use
  Company Number: JP-SUN PHARMACEUTICAL INDUSTRIES LTD-2019R1-219671

PATIENT
  Age: 73 Year
  Sex: Female

DRUGS (1)
  1. DEXAMETHASONE. [Suspect]
     Active Substance: DEXAMETHASONE
     Indication: ASTHMA
     Route: 065

REACTIONS (10)
  - Shock [Fatal]
  - Disseminated intravascular coagulation [Unknown]
  - Herpes simplex hepatitis [Fatal]
  - Dysphagia [Not Recovered/Not Resolved]
  - Herpes simplex [Unknown]
  - Oropharyngeal pain [Unknown]
  - Depressed level of consciousness [Unknown]
  - Acute hepatic failure [Fatal]
  - Hepatic necrosis [Fatal]
  - Hypotension [Unknown]
